FAERS Safety Report 9838974 (Version 3)
Quarter: 2014Q2

REPORT INFORMATION
  Report Type: Report from Study
  Country: DE (occurrence: DE)
  Receive Date: 20140123
  Receipt Date: 20140418
  Transmission Date: 20141212
  Serious: Yes (Hospitalization)
  Sender: FDA-Public Use
  Company Number: DE-ABBVIE-14P-062-1191459-00

PATIENT
  Age: 5 Year
  Sex: Female

DRUGS (2)
  1. HUMIRA [Suspect]
     Indication: JUVENILE IDIOPATHIC ARTHRITIS
     Route: 058
     Dates: start: 20130501, end: 20140113
  2. HUMIRA [Suspect]
     Route: 058
     Dates: start: 20140129

REACTIONS (1)
  - Corneal abrasion [Recovering/Resolving]
